FAERS Safety Report 8867118 (Version 1)
Quarter: 2012Q4

REPORT INFORMATION
  Report Type: 
  Country: US (occurrence: US)
  Receive Date: 20121025
  Receipt Date: 20121025
  Transmission Date: 20130627
  Serious: No
  Sender: FDA-Public Use
  Company Number: US-AMGEN-USASP2012014896

PATIENT
  Age: 61 Year
  Sex: Male

DRUGS (11)
  1. ENBREL [Suspect]
     Indication: PRODUCT USED FOR UNKNOWN INDICATION
     Dosage: 50 mg, qwk
  2. METHOTREXATE [Concomitant]
     Dosage: 2.5 mg, UNK
  3. FOLIC ACID [Concomitant]
  4. MULTI B                            /00212701/ [Concomitant]
  5. MULTIVITAMIN                       /00097801/ [Concomitant]
  6. COUMADIN                           /00014802/ [Concomitant]
     Dosage: 1 mg, UNK
  7. LASIX                              /00032601/ [Suspect]
     Dosage: 20 mg, UNK
  8. TERAZOSIN [Suspect]
     Dosage: 10 mg, UNK
  9. TOPROL [Concomitant]
  10. BENICAR HCT [Concomitant]
  11. DILT-XR [Concomitant]
     Dosage: 120 mg, UNK

REACTIONS (2)
  - Nasopharyngitis [Unknown]
  - Bronchitis [Unknown]
